FAERS Safety Report 7825353-3 (Version None)
Quarter: 2011Q4

REPORT INFORMATION
  Report Type: 
  Country: None (occurrence: None)
  Receive Date: 20111019
  Receipt Date: 20111017
  Transmission Date: 20120403
  Serious: No
  Sender: FDA-Public Use
  Company Number: US-TEVA-305452USA

PATIENT
  Sex: Male

DRUGS (6)
  1. MORNIFLUMATE [Concomitant]
  2. SINEMET [Concomitant]
  3. ALLOPURINOL [Concomitant]
  4. AZILECT [Suspect]
     Indication: PARKINSON'S DISEASE
     Dosage: 1 MILLIGRAM;
     Route: 048
     Dates: start: 20100101
  5. ASPIRIN [Concomitant]
  6. ATORVASTATIN CALCIUM [Concomitant]

REACTIONS (1)
  - STRABISMUS [None]
